FAERS Safety Report 11116944 (Version 1)
Quarter: 2015Q2

REPORT INFORMATION
  Report Type: Spontaneous
  Country: US (occurrence: US)
  Receive Date: 20150515
  Receipt Date: 20150515
  Transmission Date: 20150821
  Serious: No
  Sender: FDA-Public Use
  Company Number: US-GLAXOSMITHKLINE-US2015GSK037956

PATIENT
  Sex: Female
  Weight: 66.21 kg

DRUGS (10)
  1. XGEVA [Concomitant]
     Active Substance: DENOSUMAB
  2. HERCEPTIN [Concomitant]
     Active Substance: TRASTUZUMAB
  3. TYKERB [Suspect]
     Active Substance: LAPATINIB DITOSYLATE
     Indication: BREAST CANCER
     Dosage: 1250 MG, QD
     Dates: start: 20150224
  4. XELODA [Concomitant]
     Active Substance: CAPECITABINE
  5. LORAZEPAM. [Concomitant]
     Active Substance: LORAZEPAM
  6. TAMOXIFEN [Concomitant]
     Active Substance: TAMOXIFEN
  7. CLARITIN (NOS) [Concomitant]
  8. NORTRIPTYLINE HYDROCHLORIDE. [Concomitant]
     Active Substance: NORTRIPTYLINE HYDROCHLORIDE
  9. PROPRANOLOL [Concomitant]
     Active Substance: PROPRANOLOL\PROPRANOLOL HYDROCHLORIDE
  10. PRILOSEC [Concomitant]
     Active Substance: OMEPRAZOLE MAGNESIUM

REACTIONS (1)
  - Pulmonary mass [Unknown]
